FAERS Safety Report 13071094 (Version 1)
Quarter: 2016Q4

REPORT INFORMATION
  Report Type: Report from Study
  Country: NL (occurrence: NL)
  Receive Date: 20161229
  Receipt Date: 20161229
  Transmission Date: 20170207
  Serious: Yes (Hospitalization, Other)
  Sender: FDA-Public Use
  Company Number: NL-AMGEN-NLDSL2016183565

PATIENT
  Age: 69 Year
  Sex: Female

DRUGS (20)
  1. METFORMINE [Concomitant]
     Active Substance: METFORMIN HYDROCHLORIDE
     Indication: DIABETES MELLITUS
  2. SENNOSIDE [Concomitant]
     Active Substance: SENNOSIDES
     Dosage: 2 MG/ML, QD
     Dates: start: 20161205
  3. GLUCOSE [Concomitant]
     Active Substance: DEXTROSE
     Dosage: 500 ML, QD
     Dates: start: 20161201
  4. XGEVA [Suspect]
     Active Substance: DENOSUMAB
     Indication: BREAST CANCER METASTATIC
     Dosage: 120 MG, Q4WK
     Route: 058
     Dates: start: 20150317
  5. FULVESTRANT [Concomitant]
     Active Substance: FULVESTRANT
     Dosage: UNK
     Dates: start: 20150930
  6. OXYCODON [Concomitant]
     Active Substance: OXYCODONE
     Dosage: 5 MG, QD
     Dates: start: 20151223
  7. VINORELBINE [Concomitant]
     Active Substance: VINORELBINE\VINORELBINE TARTRATE
     Indication: BREAST CANCER METASTATIC
     Dosage: UNK
     Dates: start: 20160712
  8. BARNIDIPINE [Concomitant]
     Active Substance: BARNIDIPINE
     Dosage: 10 MG, QD
     Dates: start: 20161201
  9. DEXAMETHASON [Concomitant]
     Active Substance: DEXAMETHASONE
     Dosage: 4 MG, QD
     Dates: start: 20161007, end: 20161010
  10. TAMOXIFEN [Concomitant]
     Active Substance: TAMOXIFEN
     Indication: BREAST CANCER METASTATIC
     Dosage: 20 MG, QD
     Dates: start: 20161215
  11. DALTEPARINE SODIQUE [Concomitant]
     Dosage: 0.6 ML, QD
     Dates: start: 20161207
  12. MACROGOL EN ELEKTROLYTEN [Concomitant]
     Dosage: UNK UNK, QD
     Dates: start: 20161201
  13. ISOSORBIDE MONONITRATE. [Concomitant]
     Active Substance: ISOSORBIDE MONONITRATE
     Dosage: 25 MG, QD
     Dates: start: 20161201
  14. CALCIUM CARBONATE W/COLECALCIFEROL [Concomitant]
     Active Substance: CALCIUM CARBONATE\CHOLECALCIFEROL
     Dosage: 500 MG (1.25G/800IE), QD
     Dates: start: 20160105
  15. NITROGLYCERINE [Concomitant]
     Active Substance: NITROGLYCERIN
     Dosage: 0.4 MG/DO, QD
     Dates: start: 20161201
  16. METOCLOPRAMIDE. [Concomitant]
     Active Substance: METOCLOPRAMIDE
     Dosage: 10 MG, QD
     Dates: start: 20151028
  17. KALCIPOS-D [Concomitant]
     Active Substance: CALCIUM CARBONATE\CHOLECALCIFEROL
     Dosage: 500 MG/800IE, QD
     Dates: start: 20161017, end: 20161214
  18. PANTOPRAZOL [Concomitant]
     Active Substance: PANTOPRAZOLE SODIUM
     Dosage: 40 MG, QD
     Dates: start: 20161201
  19. METOPROLOL. [Concomitant]
     Active Substance: METOPROLOL
     Dosage: 50 MG, QD
     Dates: start: 20151028
  20. LOPERAMIDE [Concomitant]
     Active Substance: LOPERAMIDE
     Dosage: 2 MG, QD
     Dates: start: 20151105, end: 20161116

REACTIONS (8)
  - Pulmonary embolism [Unknown]
  - Malaise [Unknown]
  - Chest pain [Unknown]
  - Pleural effusion [Unknown]
  - Nasopharyngitis [Unknown]
  - Body temperature abnormal [Unknown]
  - Musculoskeletal pain [Unknown]
  - Constipation [Unknown]

NARRATIVE: CASE EVENT DATE: 20161116
